FAERS Safety Report 12103836 (Version 2)
Quarter: 2017Q1

REPORT INFORMATION
  Report Type: Spontaneous
  Country: US (occurrence: US)
  Receive Date: 20160223
  Receipt Date: 20170131
  Transmission Date: 20170428
  Serious: No
  Sender: FDA-Public Use
  Company Number: US-009507513-1602USA006131

PATIENT
  Age: 25 Year
  Sex: Female
  Weight: 104.31 kg

DRUGS (2)
  1. NUVARING [Suspect]
     Active Substance: ETHINYL ESTRADIOL\ETONOGESTREL
     Dosage: 1 RING (EVERY 4 WEEKS, NO BREAK),
     Route: 067
     Dates: start: 201607
  2. NUVARING [Suspect]
     Active Substance: ETHINYL ESTRADIOL\ETONOGESTREL
     Indication: CONTRACEPTION
     Dosage: 1 DF, 3WEEK IN 1 WEEK OUT
     Route: 067
     Dates: start: 201601

REACTIONS (5)
  - Metrorrhagia [Unknown]
  - Incorrect drug administration duration [Unknown]
  - Weight decreased [Unknown]
  - Device expulsion [Unknown]
  - Menstrual disorder [Unknown]

NARRATIVE: CASE EVENT DATE: 2016
